FAERS Safety Report 10296988 (Version 1)
Quarter: 2014Q3

REPORT INFORMATION
  Report Type: Spontaneous
  Country: US (occurrence: None)
  Receive Date: 20140708
  Receipt Date: 20140708
  Transmission Date: 20150326
  Serious: Yes (Disabling)
  Sender: FDA-Public Use
  Company Number: None

PATIENT
  Age: 67 Year
  Sex: Female
  Weight: 77.57 kg

DRUGS (1)
  1. AMITRIPTYLINE [Suspect]
     Active Substance: AMITRIPTYLINE

REACTIONS (5)
  - Ataxia [None]
  - Speech disorder [None]
  - Product substitution issue [None]
  - Cerebrovascular accident [None]
  - Tremor [None]

NARRATIVE: CASE EVENT DATE: 20140227
